FAERS Safety Report 9230385 (Version 2)
Quarter: 2013Q2

REPORT INFORMATION
  Report Type: Spontaneous
  Country: IT (occurrence: IT)
  Receive Date: 20130415
  Receipt Date: 20130430
  Transmission Date: 20140414
  Serious: Yes (Other)
  Sender: FDA-Public Use
  Company Number: IT-PFIZER INC-2013115385

PATIENT
  Age: 77 Year
  Sex: Male
  Weight: 64 kg

DRUGS (4)
  1. DIFLUCAN [Suspect]
     Indication: PYREXIA
     Dosage: 400 MG, 1X/DAY
     Route: 041
     Dates: start: 20130402, end: 20130403
  2. DUROGESIC [Concomitant]
     Indication: NEURALGIA
     Dosage: 75 UG, UNK
     Route: 061
     Dates: start: 20130101, end: 20130404
  3. TACHIPIRINA [Concomitant]
     Indication: NEURALGIA
     Dosage: 2000 MG, UNK
     Route: 048
     Dates: start: 20130402, end: 20130404
  4. PIPERACILLIN/TAZOBACTAM [Concomitant]
     Indication: PNEUMONITIS
     Dosage: 13.5 G, UNK
     Route: 042
     Dates: start: 20130402, end: 20130404

REACTIONS (1)
  - Hallucination [Recovered/Resolved]
